FAERS Safety Report 6179888-2 (Version None)
Quarter: 2009Q2

REPORT INFORMATION
  Report Type: 
  Country: None (occurrence: None)
  Receive Date: 20090505
  Receipt Date: 20090223
  Transmission Date: 20091009
  Serious: No
  Sender: FDA-Public Use
  Company Number: US-TYCO HEALTHCARE/MALLINCKRODT-T200900564

PATIENT
  Sex: Female

DRUGS (6)
  1. OXYCODONE HCL EXTENDED-RELEASE [Suspect]
  2. GUAIFENEX                          /00048001/ [Suspect]
  3. PROMETHAZINE [Suspect]
  4. METOCLOPRAMIDE [Suspect]
  5. DICYCLOMINE [Suspect]
  6. DITROPAN [Suspect]

REACTIONS (3)
  - DENTAL CARIES [None]
  - DRY MOUTH [None]
  - TOOTH LOSS [None]
